FAERS Safety Report 8512597-0 (Version None)
Quarter: 2012Q3

REPORT INFORMATION
  Report Type: 
  Country: None (occurrence: None)
  Receive Date: 20120716
  Receipt Date: 20120710
  Transmission Date: 20120928
  Serious: Yes (Other)
  Sender: FDA-Public Use
  Company Number: US-B.I. PHARMACEUTICALS,INC./RIDGEFIELD-2012-BP-15317BP

PATIENT
  Sex: Male

DRUGS (2)
  1. PRADAXA [Suspect]
     Indication: THROMBOSIS
  2. PRADAXA [Suspect]
     Indication: ATRIAL FIBRILLATION
     Dates: start: 20110228

REACTIONS (1)
  - CEREBRAL HAEMORRHAGE [None]
